FAERS Safety Report 8799626 (Version 2)
Quarter: 2012Q4

REPORT INFORMATION
  Report Type: 
  Country: US (occurrence: US)
  Receive Date: 20120919
  Receipt Date: 20120926
  Transmission Date: 20130627
  Serious: No
  Sender: FDA-Public Use
  Company Number: US-009507513-1208USA009233

PATIENT
  Sex: Male
  Weight: 113.38 kg

DRUGS (7)
  1. VICTRELIS [Suspect]
     Indication: HEPATITIS C
     Dosage: Taken 4 capsules (800mg) three times a day start on week 5
     Route: 048
  2. REBETOL [Suspect]
     Indication: HEPATITIS C
     Dosage: 200 mg, UNK
  3. PEGASYS [Concomitant]
  4. DEPAKOTE [Concomitant]
     Dosage: UNK mg, UNK
  5. PROMETHAZINE [Concomitant]
     Dosage: 12.5 mg, UNK
  6. TEMAZEPAM [Concomitant]
     Dosage: 15 mg, UNK
  7. LEXAPRO [Concomitant]
     Dosage: 10 UNK, UNK

REACTIONS (6)
  - Dehydration [Unknown]
  - Decreased appetite [Unknown]
  - Nausea [Unknown]
  - Insomnia [Unknown]
  - Dry skin [Unknown]
  - Fatigue [Unknown]
